FAERS Safety Report 15255706 (Version 9)
Quarter: 2022Q1

REPORT INFORMATION
  Report Type: Spontaneous
  Country: US (occurrence: US)
  Receive Date: 20180808
  Receipt Date: 20220225
  Transmission Date: 20220423
  Serious: No
  Sender: FDA-Public Use
  Company Number: US-PFIZER INC-2018317066

PATIENT
  Age: 9 Year
  Sex: Female
  Weight: 71.6 kg

DRUGS (3)
  1. GENOTROPIN [Suspect]
     Active Substance: SOMATROPIN
     Indication: Adrenal insufficiency
     Dosage: 1.4 MG, ONCE DAILY
     Dates: start: 201710
  2. GENOTROPIN [Suspect]
     Active Substance: SOMATROPIN
     Indication: Dysplasia
     Dosage: 13.8 MG, UNK
  3. GENOTROPIN [Suspect]
     Active Substance: SOMATROPIN
     Indication: Ectopic posterior pituitary gland
     Dosage: 1.6 MG, DAILY

REACTIONS (9)
  - Off label use [Unknown]
  - Drug dose omission by device [Recovered/Resolved]
  - Device power source issue [Unknown]
  - Device malfunction [Unknown]
  - Device information output issue [Unknown]
  - Poor quality device used [Unknown]
  - Insulin-like growth factor increased [Unknown]
  - Stress [Unknown]
  - Malaise [Unknown]

NARRATIVE: CASE EVENT DATE: 20170101
